FAERS Safety Report 16858230 (Version 1)
Quarter: 2019Q3

REPORT INFORMATION
  Report Type: Report from Study
  Country: CN (occurrence: CN)
  Receive Date: 20190926
  Receipt Date: 20190926
  Transmission Date: 20191005
  Serious: Yes (Other)
  Sender: FDA-Public Use
  Company Number: CN-PURDUE PHARMA-GBR-2019-0071022

PATIENT
  Age: 55 Year
  Sex: Male

DRUGS (12)
  1. OXYCODONE HYDROCHLORIDE. [Suspect]
     Active Substance: OXYCODONE HYDROCHLORIDE
     Dosage: 60 MG, Q12H
     Route: 048
     Dates: start: 20190218, end: 20190220
  2. OXYCODONE HYDROCHLORIDE. [Suspect]
     Active Substance: OXYCODONE HYDROCHLORIDE
     Dosage: 200 MG, Q12H
     Route: 048
     Dates: start: 20190227, end: 20190305
  3. OXYCODONE HYDROCHLORIDE. [Suspect]
     Active Substance: OXYCODONE HYDROCHLORIDE
     Dosage: 20 MG, Q12H
     Route: 048
     Dates: start: 20190125, end: 20190127
  4. OXYCODONE HYDROCHLORIDE. [Suspect]
     Active Substance: OXYCODONE HYDROCHLORIDE
     Dosage: 160 MG, Q12H
     Route: 048
     Dates: start: 20190221, end: 20190227
  5. OXYCODONE HYDROCHLORIDE. [Suspect]
     Active Substance: OXYCODONE HYDROCHLORIDE
     Dosage: 40 MG, Q12H
     Route: 048
     Dates: start: 20190206, end: 20190218
  6. OXYCODONE HYDROCHLORIDE. [Suspect]
     Active Substance: OXYCODONE HYDROCHLORIDE
     Dosage: 30 MG, Q12H
     Route: 048
     Dates: start: 20190127, end: 20190226
  7. OXYCODONE HYDROCHLORIDE. [Suspect]
     Active Substance: OXYCODONE HYDROCHLORIDE
     Dosage: 10 MG, Q12H
     Route: 048
     Dates: start: 20190124, end: 20190124
  8. GABAPENTIN. [Concomitant]
     Active Substance: GABAPENTIN
  9. OXYCODONE HYDROCHLORIDE. [Suspect]
     Active Substance: OXYCODONE HYDROCHLORIDE
     Indication: CANCER PAIN
     Dosage: 280 MG, Q12H
     Route: 048
     Dates: start: 20190305, end: 20190917
  10. MORPHINE [Concomitant]
     Active Substance: MORPHINE
  11. MORPHINE [Concomitant]
     Active Substance: MORPHINE
  12. OXYCODONE HYDROCHLORIDE. [Suspect]
     Active Substance: OXYCODONE HYDROCHLORIDE
     Dosage: 80 MG, Q12H
     Route: 048
     Dates: start: 20190220, end: 20190221

REACTIONS (2)
  - Coma [Unknown]
  - Miosis [Unknown]

NARRATIVE: CASE EVENT DATE: 20190308
